FAERS Safety Report 20823013 (Version 1)
Quarter: 2022Q2

REPORT INFORMATION
  Report Type: Spontaneous
  Country: US (occurrence: US)
  Receive Date: 20220512
  Receipt Date: 20220512
  Transmission Date: 20220721
  Serious: No
  Sender: FDA-Public Use
  Company Number: US-AMGEN-USASP2022082458

PATIENT
  Sex: Female

DRUGS (2)
  1. OTEZLA [Suspect]
     Active Substance: APREMILAST
     Indication: Psoriasis
     Dosage: 30 MILLIGRAM, BID
     Route: 048
     Dates: start: 20200221
  2. IRON [Concomitant]
     Active Substance: IRON
     Dosage: 45 MILLIGRAM

REACTIONS (2)
  - Psoriasis [Recovered/Resolved]
  - Product dose omission issue [Unknown]
